FAERS Safety Report 9525189 (Version 1)
Quarter: 2013Q3

REPORT INFORMATION
  Report Type: Spontaneous
  Country: US (occurrence: US)
  Receive Date: 20130916
  Receipt Date: 20130916
  Transmission Date: 20140515
  Serious: Yes (Other)
  Sender: FDA-Public Use
  Company Number: US-BAYER-2013-110818

PATIENT
  Age: 75 Year
  Sex: Female
  Weight: 55.33 kg

DRUGS (4)
  1. PHILLIPS STOOL SOFTENER BULK DOCUSATE [Suspect]
     Indication: CONSTIPATION
     Dosage: 1 DF, PRN
     Route: 048
     Dates: start: 2013, end: 20130910
  2. AVAPRO [Concomitant]
  3. GABAPENTIN [Concomitant]
  4. LABETALOL [Concomitant]

REACTIONS (7)
  - Pharyngeal oedema [Not Recovered/Not Resolved]
  - Dysphagia [Not Recovered/Not Resolved]
  - Foreign body [Recovered/Resolved]
  - Oropharyngeal pain [Not Recovered/Not Resolved]
  - Dyspnoea [None]
  - Throat irritation [None]
  - Throat irritation [None]
